FAERS Safety Report 5512241-0 (Version None)
Quarter: 2007Q4

REPORT INFORMATION
  Report Type: 
  Country: None (occurrence: None)
  Receive Date: 20071108
  Receipt Date: 20071108
  Transmission Date: 20080405
  Serious: Yes (Other)
  Sender: FDA-Public Use
  Company Number: None

PATIENT
  Sex: Male

DRUGS (2)
  1. OXYCODONE HCL EXTENDED-RELEASE [Suspect]
     Indication: ARTHRITIS
     Dosage: TWICE TID PO
     Route: 048
  2. HYDROMORPHONE HCL [Suspect]
     Indication: DIABETIC NEUROPATHY
     Dosage: TWICE TID PO
     Route: 048

REACTIONS (3)
  - ABDOMINAL DISCOMFORT [None]
  - NAUSEA [None]
  - VOMITING [None]
